FAERS Safety Report 6278710-3 (Version None)
Quarter: 2009Q3

REPORT INFORMATION
  Report Type: 
  Country: None (occurrence: None)
  Receive Date: 20090721
  Receipt Date: 20090619
  Transmission Date: 20100115
  Serious: Yes (Death)
  Sender: FDA-Public Use
  Company Number: WAES 0906USA04200

PATIENT
  Sex: Female

DRUGS (2)
  1. INJ IVEMEND UNK [Suspect]
     Dosage: IV
     Route: 042
     Dates: start: 20080324
  2. INJ IVEMEND UNK [Suspect]
     Dosage: IV
     Route: 042
     Dates: start: 20080414

REACTIONS (1)
  - DEATH [None]
